FAERS Safety Report 15088294 (Version 1)
Quarter: 2018Q2

REPORT INFORMATION
  Report Type: Spontaneous
  Country: AT (occurrence: AT)
  Receive Date: 20180629
  Receipt Date: 20180629
  Transmission Date: 20180711
  Serious: Yes (Death, Hospitalization)
  Sender: FDA-Public Use
  Company Number: AT-ROCHE-2143343

PATIENT
  Age: 74 Year
  Sex: Male
  Weight: 61 kg

DRUGS (8)
  1. LEUCOVORIN. [Suspect]
     Active Substance: LEUCOVORIN
     Indication: ADENOCARCINOMA
     Dosage: UNK
     Route: 065
  2. FOLINIC ACID [Suspect]
     Active Substance: LEUCOVORIN
     Indication: ADENOCARCINOMA
     Dosage: UNK UNK, TIW
     Route: 065
     Dates: start: 201609
  3. FLUOROURACIL. [Suspect]
     Active Substance: FLUOROURACIL
     Indication: ADENOCARCINOMA
     Dosage: UNK
     Route: 065
  4. EBETAXEL [Suspect]
     Active Substance: PACLITAXEL
     Indication: ADENOCARCINOMA
     Dosage: 6 MG/L, UNK
     Route: 041
  5. CAPECITABINE. [Suspect]
     Active Substance: CAPECITABINE
     Indication: ADENOCARCINOMA
     Dosage: UNK
     Route: 065
  6. FLUOROURACIL. [Suspect]
     Active Substance: FLUOROURACIL
     Dosage: UNK UNK, TIW
     Route: 065
     Dates: start: 201609
  7. OXALIPLATIN. [Suspect]
     Active Substance: OXALIPLATIN
     Indication: ADENOCARCINOMA
     Dosage: UNK
     Route: 065
  8. GEMCITABINE [Suspect]
     Active Substance: GEMCITABINE\GEMCITABINE HYDROCHLORIDE
     Indication: ADENOCARCINOMA
     Dosage: UNK
     Route: 065

REACTIONS (9)
  - Adenocarcinoma [Unknown]
  - Fatigue [Unknown]
  - Gait disturbance [Unknown]
  - Asthenia [Unknown]
  - Neuropathy peripheral [Unknown]
  - Dizziness [Unknown]
  - Diverticulitis [Fatal]
  - Metastases to liver [Recovering/Resolving]
  - Malignant neoplasm progression [Unknown]

NARRATIVE: CASE EVENT DATE: 201704
